FAERS Safety Report 13532111 (Version 1)
Quarter: 2017Q2

REPORT INFORMATION
  Report Type: Spontaneous
  Country: US (occurrence: US)
  Receive Date: 20170510
  Receipt Date: 20170510
  Transmission Date: 20170830
  Serious: No
  Sender: FDA-Public Use
  Company Number: US-GLAXOSMITHKLINE-US2017066764

PATIENT
  Sex: Female

DRUGS (1)
  1. ABREVA [Suspect]
     Active Substance: DOCOSANOL
     Indication: ORAL HERPES
     Dosage: UNK

REACTIONS (7)
  - Pain [Recovered/Resolved]
  - Oral herpes [Unknown]
  - Scab [Recovered/Resolved]
  - Weight decreased [Unknown]
  - Infection [Unknown]
  - Condition aggravated [Unknown]
  - Cheilitis [Recovered/Resolved]
